FAERS Safety Report 26146008 (Version 1)
Quarter: 2025Q4

REPORT INFORMATION
  Report Type: Report from Study
  Country: BR (occurrence: BR)
  Receive Date: 20251211
  Receipt Date: 20251211
  Transmission Date: 20260117
  Serious: Yes (Hospitalization, Other)
  Sender: NOVARTIS
  Company Number: BR-002147023-NVSC2025BR173452

PATIENT
  Age: 40 Year
  Sex: Female
  Weight: 81 kg

DRUGS (8)
  1. TAFINLAR [Suspect]
     Active Substance: DABRAFENIB MESYLATE
     Indication: Metastatic malignant melanoma
     Dosage: 1 DOSAGE FORM
     Route: 048
     Dates: start: 202410, end: 202411
  2. TAFINLAR [Suspect]
     Active Substance: DABRAFENIB MESYLATE
     Dosage: 1 DOSAGE FORM
     Route: 048
     Dates: start: 202412, end: 202502
  3. TAFINLAR [Suspect]
     Active Substance: DABRAFENIB MESYLATE
     Dosage: 1 DOSAGE FORM
     Route: 048
     Dates: start: 20250725
  4. TAFINLAR [Suspect]
     Active Substance: DABRAFENIB MESYLATE
     Dosage: UNK
     Route: 065
  5. MEKINIST [Suspect]
     Active Substance: TRAMETINIB DIMETHYL SULFOXIDE
     Indication: Metastatic malignant melanoma
     Dosage: 4 DOSAGE FORM, 2 TABLETS  IN THE  MORNING  AND 2 TABLETS IN  THE  AFTERNOON
     Route: 048
     Dates: start: 202410, end: 202411
  6. MEKINIST [Suspect]
     Active Substance: TRAMETINIB DIMETHYL SULFOXIDE
     Dosage: 4 DOSAGE FORM, 2 TABLETS  IN THE  MORNING  AND 2 TABLETS IN  THE  AFTERNOON
     Route: 048
     Dates: start: 202412, end: 202502
  7. MEKINIST [Suspect]
     Active Substance: TRAMETINIB DIMETHYL SULFOXIDE
     Dosage: 4 DOSAGE FORM, 2 TABLETS  IN THE  MORNING  AND 2 TABLETS IN  THE  AFTERNOON
     Route: 048
     Dates: start: 20250725
  8. MEKINIST [Suspect]
     Active Substance: TRAMETINIB DIMETHYL SULFOXIDE
     Dosage: UNK
     Route: 065

REACTIONS (8)
  - Cerebrovascular accident [Recovered/Resolved with Sequelae]
  - Mobility decreased [Not Recovered/Not Resolved]
  - Speech disorder [Not Recovered/Not Resolved]
  - Memory impairment [Not Recovered/Not Resolved]
  - Gait disturbance [Unknown]
  - Hemiparesis [Not Recovered/Not Resolved]
  - Thrombocytopenia [Recovered/Resolved]
  - Anxiety [Not Recovered/Not Resolved]

NARRATIVE: CASE EVENT DATE: 20241122
